FAERS Safety Report 21020497 (Version 1)
Quarter: 2022Q2

REPORT INFORMATION
  Report Type: Spontaneous
  Country: DE (occurrence: DE)
  Receive Date: 20220629
  Receipt Date: 20220629
  Transmission Date: 20220721
  Serious: Yes (Hospitalization, Other)
  Sender: FDA-Public Use
  Company Number: DE-ROCHE-2215136

PATIENT
  Age: 47 Year
  Sex: Male

DRUGS (16)
  1. DALFAMPRIDINE [Suspect]
     Active Substance: DALFAMPRIDINE
     Indication: Product used for unknown indication
  2. BACLOFEN [Suspect]
     Active Substance: BACLOFEN
     Indication: Product used for unknown indication
     Route: 065
  3. BACLOFEN [Suspect]
     Active Substance: BACLOFEN
     Route: 042
     Dates: start: 20150115
  4. OCREVUS [Suspect]
     Active Substance: OCRELIZUMAB
     Indication: Primary progressive multiple sclerosis
     Dosage: MAINTENANCE DOSE
     Route: 042
     Dates: start: 20181024
  5. OCREVUS [Suspect]
     Active Substance: OCRELIZUMAB
     Route: 042
  6. OCREVUS [Suspect]
     Active Substance: OCRELIZUMAB
     Dosage: INFUSION, SOLUTION
     Route: 042
     Dates: start: 20181024
  7. OCREVUS [Suspect]
     Active Substance: OCRELIZUMAB
     Dosage: INFUSION, SOLUTION, MAINTENANCE DOSE
     Route: 042
     Dates: start: 20190408
  8. OCREVUS [Suspect]
     Active Substance: OCRELIZUMAB
     Dosage: INFUSION, SOLUTION
     Route: 042
     Dates: start: 20191030
  9. OCREVUS [Suspect]
     Active Substance: OCRELIZUMAB
     Dosage: 5TH MAINTENANCE DOSE?INFUSION, SOLUTION
     Dates: start: 20210714
  10. RIVOTRIL [Concomitant]
     Active Substance: CLONAZEPAM
     Indication: Product used for unknown indication
  11. RIVOTRIL [Concomitant]
     Active Substance: CLONAZEPAM
  12. OPIPRAMOL [Concomitant]
     Active Substance: OPIPRAMOL
     Indication: Product used for unknown indication
  13. OPIPRAMOL [Concomitant]
     Active Substance: OPIPRAMOL
     Dosage: 1/4TH TABLET
  14. D3 + K2 (COLECALCIFEROL; MENAQUINONE) [Concomitant]
     Indication: Product used for unknown indication
  15. COMIRNATY [Concomitant]
     Active Substance: TOZINAMERAN
     Indication: Immunisation
     Dates: start: 20210428
  16. COMIRNATY [Concomitant]
     Active Substance: TOZINAMERAN
     Dates: start: 20210609

REACTIONS (15)
  - Multiple sclerosis relapse [Not Recovered/Not Resolved]
  - Neuralgia [Recovered/Resolved]
  - Hypotonia [Recovered/Resolved]
  - Tendonitis [Not Recovered/Not Resolved]
  - Antinuclear antibody increased [Recovered/Resolved]
  - Arthralgia [Recovered/Resolved]
  - Posture abnormal [Recovered/Resolved]
  - Gait disturbance [Not Recovered/Not Resolved]
  - Drug ineffective [Unknown]
  - Gait disturbance [Not Recovered/Not Resolved]
  - Pain in extremity [Recovered/Resolved]
  - Pruritus [Not Recovered/Not Resolved]
  - Dry skin [Not Recovered/Not Resolved]
  - Dizziness [Recovered/Resolved]
  - Nasopharyngitis [Recovered/Resolved]

NARRATIVE: CASE EVENT DATE: 20181109
